FAERS Safety Report 5895589-X (Version None)
Quarter: 2008Q3

REPORT INFORMATION
  Report Type: 
  Country: None (occurrence: None)
  Receive Date: 20080924
  Receipt Date: 20080403
  Transmission Date: 20090109
  Serious: Yes (Other)
  Sender: FDA-Public Use
  Company Number: US-ASTRAZENECA-2006UW08316

PATIENT
  Age: 299 Month
  Sex: Female
  Weight: 77.1 kg

DRUGS (3)
  1. SEROQUEL [Suspect]
     Indication: DEPRESSION
     Route: 048
  2. GEODON [Concomitant]
  3. STELAZINE [Concomitant]
     Dates: start: 20060520

REACTIONS (2)
  - DIABETES MELLITUS [None]
  - DIABETIC COMA [None]
